FAERS Safety Report 8810961 (Version 1)
Quarter: 2012Q4

REPORT INFORMATION
  Report Type: Spontaneous
  Country: US (occurrence: None)
  Receive Date: 20120921
  Receipt Date: 20120921
  Transmission Date: 20130627
  Serious: Yes (Hospitalization)
  Sender: FDA-Public Use
  Company Number: AUR/APL-2012-03994

PATIENT
  Age: 63 Year
  Sex: Male

DRUGS (1)
  1. AMOXICILLIN\CLAVULANATE POTASSIUM [Suspect]
     Indication: CHEST INFECTION
     Dosage: 1875 mg (625 mg, 3 in 1 d), oral
     Route: 048
     Dates: start: 20120814, end: 20120821

REACTIONS (3)
  - Jaundice [None]
  - Alanine aminotransferase increased [None]
  - Gamma-glutamyltransferase increased [None]
